FAERS Safety Report 14892927 (Version 1)
Quarter: 2018Q2

REPORT INFORMATION
  Report Type: Spontaneous
  Country: US (occurrence: US)
  Receive Date: 20180426
  Receipt Date: 20180426
  Transmission Date: 20180711
  Serious: Yes (Hospitalization)
  Sender: FDA-Public Use
  Company Number: None

PATIENT
  Age: 67 Year
  Sex: Male

DRUGS (1)
  1. STIVARGA [Suspect]
     Active Substance: REGORAFENIB
     Indication: GASTROINTESTINAL STROMAL CANCER
     Route: 048
     Dates: start: 20150125, end: 20180410

REACTIONS (3)
  - Cerebrovascular accident [None]
  - Asthenia [None]
  - Dysphagia [None]

NARRATIVE: CASE EVENT DATE: 20180410
